FAERS Safety Report 20089857 (Version 3)
Quarter: 2021Q4

REPORT INFORMATION
  Report Type: Spontaneous
  Country: SK (occurrence: SK)
  Receive Date: 20211119
  Receipt Date: 20211222
  Transmission Date: 20220303
  Serious: Yes (Death, Other)
  Sender: FDA-Public Use
  Company Number: SK-AMGEN-SVKSP2021180348

PATIENT
  Sex: Female

DRUGS (1)
  1. BLINCYTO [Suspect]
     Active Substance: BLINATUMOMAB
     Indication: B precursor type acute leukaemia
     Dosage: UNK
     Route: 065
     Dates: start: 20211101

REACTIONS (9)
  - Brain oedema [Fatal]
  - Intracranial pressure increased [Fatal]
  - Immune effector cell-associated neurotoxicity syndrome [Fatal]
  - Paralysis [Unknown]
  - Cytopenia [Unknown]
  - Acute lymphocytic leukaemia recurrent [Unknown]
  - Loss of consciousness [Unknown]
  - Dysphagia [Unknown]
  - Aphasia [Unknown]

NARRATIVE: CASE EVENT DATE: 20211101
